FAERS Safety Report 13286187 (Version 11)
Quarter: 2018Q3

REPORT INFORMATION
  Report Type: Report from Study
  Country: US (occurrence: US)
  Receive Date: 20170301
  Receipt Date: 20180913
  Transmission Date: 20181010
  Serious: Yes (Hospitalization)
  Sender: FDA-Public Use
  Company Number: US-ACTELION-A-US2017-150363

PATIENT
  Age: 43 Year
  Sex: Male
  Weight: 100.68 kg

DRUGS (4)
  1. VELETRI [Suspect]
     Active Substance: EPOPROSTENOL
     Indication: PULMONARY ARTERIAL HYPERTENSION
     Dosage: 40.74 NG/KG, PER MIN
     Route: 042
  2. VELETRI [Suspect]
     Active Substance: EPOPROSTENOL
     Dosage: 45.38 NG/KG, PER MIN
     Route: 042
  3. LETAIRIS [Concomitant]
     Active Substance: AMBRISENTAN
  4. COUMADIN [Concomitant]
     Active Substance: WARFARIN SODIUM

REACTIONS (25)
  - Influenza [Unknown]
  - Flushing [Unknown]
  - Skin discolouration [Unknown]
  - Pollakiuria [Unknown]
  - Cardiac failure congestive [Unknown]
  - Blood pressure abnormal [Unknown]
  - Dyspnoea exertional [Unknown]
  - Fatigue [Unknown]
  - Chest discomfort [Unknown]
  - Pain in jaw [Unknown]
  - Chest pain [Unknown]
  - Lower respiratory tract infection [Unknown]
  - Device issue [Unknown]
  - Headache [Unknown]
  - Palpitations [Unknown]
  - Peripheral swelling [Unknown]
  - Feeling cold [Unknown]
  - Dyspnoea [Recovering/Resolving]
  - Pain in extremity [Unknown]
  - Fluid overload [Unknown]
  - Somnolence [Unknown]
  - Heart rate increased [Unknown]
  - Nasopharyngitis [Unknown]
  - Pain [Unknown]
  - Feeling jittery [Recovering/Resolving]
